FAERS Safety Report 8801122 (Version 2)
Quarter: 2012Q4

REPORT INFORMATION
  Report Type: 
  Country: IT (occurrence: IT)
  Receive Date: 20120921
  Receipt Date: 20121004
  Transmission Date: 20130627
  Serious: Yes (Hospitalization)
  Sender: FDA-Public Use
  Company Number: IT-MILLENNIUM PHARMACEUTICALS, INC.-2012-06442

PATIENT

DRUGS (1)
  1. VELCADE [Suspect]
     Indication: MULTIPLE MYELOMA
     Dosage: 2.4 mg, Cyclic
     Route: 042
     Dates: start: 20120627, end: 20120711

REACTIONS (2)
  - Brain natriuretic peptide increased [Not Recovered/Not Resolved]
  - Ejection fraction decreased [Recovered/Resolved]
